FAERS Safety Report 13870823 (Version 1)
Quarter: 2017Q3

REPORT INFORMATION
  Report Type: Spontaneous
  Country: US (occurrence: None)
  Receive Date: 20170814
  Receipt Date: 20170814
  Transmission Date: 20171127
  Serious: Yes (Life-Threatening)
  Sender: FDA-Public Use
  Company Number: None

PATIENT
  Age: 7 Year
  Sex: Female

DRUGS (1)
  1. HUMAN GROWTH HORMONE [Suspect]
     Active Substance: SOMATROPIN

REACTIONS (3)
  - Skin discolouration [None]
  - Victim of child abuse [None]
  - Faeces discoloured [None]

NARRATIVE: CASE EVENT DATE: 20170814
